FAERS Safety Report 9459007 (Version 2)
Quarter: 2013Q3

REPORT INFORMATION
  Report Type: Other
  Country: DK (occurrence: US)
  Receive Date: 20130814
  Receipt Date: 20130918
  Transmission Date: 20140515
  Serious: Yes (Hospitalization)
  Sender: FDA-Public Use
  Company Number: US-FRI-1000047790

PATIENT
  Age: 25 Year
  Sex: Female

DRUGS (3)
  1. LEXAPRO [Suspect]
     Indication: PRODUCT USED FOR UNKNOWN INDICATION
  2. KETAMINE [Suspect]
     Indication: PRODUCT USED FOR UNKNOWN INDICATION
  3. CLOMIPRAMINE [Suspect]
     Indication: PRODUCT USED FOR UNKNOWN INDICATION

REACTIONS (14)
  - Suicidal ideation [Unknown]
  - Trichotillomania [Unknown]
  - Anxiety [Unknown]
  - Anhedonia [Unknown]
  - Decreased appetite [Unknown]
  - Depressed mood [Unknown]
  - Illusion [Unknown]
  - Sleep disorder [Unknown]
  - Derealisation [Unknown]
  - Hypersomnia [Unknown]
  - Hyperphagia [Unknown]
  - Weight increased [Unknown]
  - Drug effect incomplete [Unknown]
  - Drug interaction [Unknown]
